FAERS Safety Report 5658636-6 (Version None)
Quarter: 2008Q1

REPORT INFORMATION
  Report Type: 
  Country: None (occurrence: None)
  Receive Date: 20080310
  Receipt Date: 20070323
  Transmission Date: 20080703
  Serious: No
  Sender: FDA-Public Use
  Company Number: US-BAYER-200710912BCC

PATIENT
  Age: 35 Year
  Sex: Female
  Weight: 50 kg

DRUGS (3)
  1. ALEVE (CAPLET) [Suspect]
     Indication: DEPRESSION
     Dosage: UNIT DOSE: 220 MG
     Route: 048
     Dates: start: 20070323
  2. BENADRYL [Concomitant]
     Indication: SLEEP DISORDER
     Route: 048
  3. ALCOHOL [Concomitant]
     Dates: start: 20070322

REACTIONS (3)
  - NO ADVERSE EVENT [None]
  - OVERDOSE [None]
  - SUICIDE ATTEMPT [None]
